FAERS Safety Report 21219706 (Version 6)
Quarter: 2024Q2

REPORT INFORMATION
  Report Type: Report from Study
  Country: KW (occurrence: KW)
  Receive Date: 20220817
  Receipt Date: 20240606
  Transmission Date: 20240716
  Serious: Yes (Hospitalization, Other)
  Sender: FDA-Public Use
  Company Number: KW-TAKEDA-2022TUS055799

PATIENT
  Age: 19 Year
  Sex: Female
  Weight: 73 kg

DRUGS (3)
  1. LANADELUMAB [Suspect]
     Active Substance: LANADELUMAB
     Indication: Hereditary angioedema
     Dosage: 300 MILLIGRAM, Q2WEEKS
     Route: 058
     Dates: start: 20211122, end: 20220731
  2. LANADELUMAB [Suspect]
     Active Substance: LANADELUMAB
     Dosage: 300 MILLIGRAM, Q4WEEKS
     Route: 058
     Dates: start: 20220801
  3. COLFORSIN [Concomitant]
     Active Substance: COLFORSIN
     Indication: Nutritional supplementation
     Dosage: 500 MILLIGRAM
     Route: 048
     Dates: start: 20220825, end: 20220901

REACTIONS (1)
  - Bacterial infection [Recovered/Resolved]

NARRATIVE: CASE EVENT DATE: 20211201
